FAERS Safety Report 7372258-0 (Version None)
Quarter: 2011Q1

REPORT INFORMATION
  Report Type: 
  Country: None (occurrence: None)
  Receive Date: 20110324
  Receipt Date: 20110317
  Transmission Date: 20110831
  Serious: Yes (Death, Hospitalization)
  Sender: FDA-Public Use
  Company Number: A0897689A

PATIENT
  Age: 67 Year
  Sex: Female

DRUGS (1)
  1. AVANDIA [Suspect]
     Dosage: 3MG PER DAY
     Route: 048
     Dates: start: 20060321, end: 20080323

REACTIONS (2)
  - DEATH [None]
  - MYOCARDIAL INFARCTION [None]
